FAERS Safety Report 14976050 (Version 1)
Quarter: 2018Q2

REPORT INFORMATION
  Report Type: Spontaneous
  Country: US (occurrence: US)
  Receive Date: 20180605
  Receipt Date: 20180605
  Transmission Date: 20180711
  Serious: No
  Sender: FDA-Public Use
  Company Number: US-ROCHE-2070760

PATIENT
  Sex: Female

DRUGS (8)
  1. ACTEMRA [Suspect]
     Active Substance: TOCILIZUMAB
     Indication: RHEUMATOID ARTHRITIS
     Route: 065
  2. XELJANZ [Concomitant]
     Active Substance: TOFACITINIB CITRATE
     Dosage: 11 REFILLS
     Route: 048
  3. METHOTREXATE. [Concomitant]
     Active Substance: METHOTREXATE
  4. REMICADE [Concomitant]
     Active Substance: INFLIXIMAB
  5. HUMIRA [Concomitant]
     Active Substance: ADALIMUMAB
  6. ENBREL [Concomitant]
     Active Substance: ETANERCEPT
  7. SIMPONI [Concomitant]
     Active Substance: GOLIMUMAB
  8. ARAVA [Concomitant]
     Active Substance: LEFLUNOMIDE

REACTIONS (2)
  - Arthritis [Unknown]
  - Therapeutic response shortened [Unknown]
